FAERS Safety Report 5177864-X (Version None)
Quarter: 2006Q4

REPORT INFORMATION
  Report Type: 
  Country: None (occurrence: None)
  Receive Date: 20061218
  Receipt Date: 20060725
  Transmission Date: 20070319
  Serious: No
  Sender: FDA-Public Use
  Company Number: US-AMGEN-KDL187884

PATIENT
  Sex: Male

DRUGS (1)
  1. ENBREL [Suspect]
     Indication: ANKYLOSING SPONDYLITIS
     Route: 058
     Dates: start: 20060612

REACTIONS (6)
  - INJECTION SITE REACTION [None]
  - INSOMNIA [None]
  - MALAISE [None]
  - NAUSEA [None]
  - RASH [None]
  - SKIN DISCOLOURATION [None]
